FAERS Safety Report 10179688 (Version 1)
Quarter: 2014Q2

REPORT INFORMATION
  Report Type: Spontaneous
  Country: US (occurrence: None)
  Receive Date: 20140515
  Receipt Date: 20140515
  Transmission Date: 20141212
  Serious: Yes (Hospitalization, Other)
  Sender: FDA-Public Use
  Company Number: FK201401699

PATIENT
  Age: 36 Year
  Sex: Female

DRUGS (3)
  1. PROPRANOLOL HYDROCHLORIDE (MANUFACTURER UNKNOWN) (PROPRANOLOL HYDROCHLORIDE)? [Suspect]
     Indication: PRODUCT USED FOR UNKNOWN INDICATION
     Route: 048
  2. VERAPAMIL (VERAPAMIL) [Suspect]
     Indication: PRODUCT USED FOR UNKNOWN INDICATION
     Route: 048
  3. LIPID EMULSION (LIPIDS NOS) [Suspect]
     Indication: TOXICITY TO VARIOUS AGENTS
     Route: 040

REACTIONS (8)
  - Acute respiratory distress syndrome [None]
  - Encephalopathy [None]
  - Liver function test abnormal [None]
  - Cardiac arrest [None]
  - Hypotension [None]
  - Bradycardia [None]
  - Toxicity to various agents [None]
  - Palpitations [None]
